FAERS Safety Report 9023556 (Version 2)
Quarter: 2013Q1

REPORT INFORMATION
  Report Type: Spontaneous
  Country: JP (occurrence: JP)
  Receive Date: 20130121
  Receipt Date: 20130319
  Transmission Date: 20140127
  Serious: Yes (Other)
  Sender: FDA-Public Use
  Company Number: PHHY2013JP005334

PATIENT
  Sex: 0

DRUGS (1)
  1. ZOMETA [Suspect]
     Indication: METASTASES TO BONE
     Dosage: 4 MG,DAILY
     Route: 042

REACTIONS (2)
  - Osteonecrosis of jaw [Unknown]
  - Purulence [Unknown]
